FAERS Safety Report 9680864 (Version 2)
Quarter: 2013Q4

REPORT INFORMATION
  Report Type: Report from Study
  Country: NL (occurrence: NL)
  Receive Date: 20131111
  Receipt Date: 20131205
  Transmission Date: 20140711
  Serious: Yes (Death)
  Sender: FDA-Public Use
  Company Number: PHHY2013NL127484

PATIENT
  Sex: Male

DRUGS (4)
  1. ZOMETA [Suspect]
     Indication: PROSTATE CANCER METASTATIC
     Dosage: 4 MG/100 ML (1 PER 3 WEEKS)
     Route: 042
  2. ZOMETA [Suspect]
     Dosage: 4 MG/100 ML (1 PER 3 WEEKS)
     Route: 042
     Dates: start: 20120808
  3. ZOMETA [Suspect]
     Dosage: 4 MG/100 ML (1 PER 3 WEEKS)
     Route: 042
     Dates: start: 20131009
  4. ZOMETA [Suspect]
     Dosage: 4 MG/100 ML (1 PER 3 WEEKS)
     Route: 042
     Dates: start: 20131030

REACTIONS (3)
  - Prostate cancer metastatic [Fatal]
  - Malignant neoplasm progression [Fatal]
  - Terminal state [Fatal]
